FAERS Safety Report 8919376 (Version 1)
Quarter: 2012Q4

REPORT INFORMATION
  Report Type: 
  Country: US (occurrence: US)
  Receive Date: 20121121
  Receipt Date: 20121121
  Transmission Date: 20130627
  Serious: Yes (Other)
  Sender: FDA-Public Use
  Company Number: US-PFIZER INC-2012290190

PATIENT
  Age: 40 Year
  Sex: Male
  Weight: 81.63 kg

DRUGS (2)
  1. LYRICA [Suspect]
     Indication: FIBROMYALGIA
     Dosage: 100 mg, 2x/day
     Route: 048
     Dates: start: 20121004
  2. SEROQUEL [Concomitant]
     Dosage: UNK

REACTIONS (1)
  - Drug dependence [Unknown]
